FAERS Safety Report 12219104 (Version 1)
Quarter: 2016Q1

REPORT INFORMATION
  Report Type: Spontaneous
  Country: US (occurrence: US)
  Receive Date: 20160329
  Receipt Date: 20160329
  Transmission Date: 20160526
  Serious: Yes (Other)
  Sender: FDA-Public Use
  Company Number: US-PFIZER INC-2016171279

PATIENT
  Age: 67 Year
  Sex: Female
  Weight: 70 kg

DRUGS (8)
  1. PREPARATION H CREAM MAX STRENGTH [Suspect]
     Active Substance: GLYCERIN\PETROLATUM\PHENYLEPHRINE HYDROCHLORIDE\PRAMOXINE HYDROCHLORIDE
     Indication: HAEMORRHOIDS
     Dosage: USES SEVERAL TIMES PER DAY ESPECIALLY AT BEDTIME
     Dates: end: 20160322
  2. GINGER ROOT [Concomitant]
     Active Substance: GINGER
     Indication: ARTHRITIS
     Dosage: 550 MG, 2X/DAY, ONE AFTER BREAKFAST, ONE AFTER LUNCH
  3. ESTRACE [Concomitant]
     Active Substance: ESTRADIOL
     Indication: HORMONE LEVEL ABNORMAL
     Dosage: 0.1MG CREAM, USE EVERY 10 DAYS
  4. ARMOUR THYROID [Concomitant]
     Active Substance: THYROID, PORCINE
     Indication: HYPOTHYROIDISM
     Dosage: 60 MG, 1X/DAY (30 MG, TWO TABLETS EVERY MORNING BEFORE BREAKFAST)
  5. CINNAMON. [Concomitant]
     Active Substance: CINNAMON
     Indication: METABOLIC DISORDER
     Dosage: 1000 MG, 2X/DAY (500 MG CAPSULES, TWO IN THE MORNING AND TWO AT LUNCHTIME)
  6. ESCITALOPRAM [Concomitant]
     Active Substance: ESCITALOPRAM OXALATE
     Indication: ANXIETY
     Dosage: 20 MG, 2X/DAY, IN THE MORNING AND LATER IN THE DAY
  7. COCONUT OIL [Concomitant]
     Active Substance: COCONUT OIL
     Dosage: 2000 MG, 1X/DAY (2 PILLS IN THE MORNING, 1000 MG EACH)
  8. ALPRAZOLAM. [Concomitant]
     Active Substance: ALPRAZOLAM
     Indication: SLEEP DISORDER
     Dosage: 0.5 MG, 1X/DAY, AT BEDTIME

REACTIONS (3)
  - Haemorrhage [Unknown]
  - Condition aggravated [Unknown]
  - Haemorrhoids [Unknown]

NARRATIVE: CASE EVENT DATE: 20160322
